FAERS Safety Report 10432105 (Version 2)
Quarter: 2014Q4

REPORT INFORMATION
  Report Type: Report from Study
  Country: BR (occurrence: BR)
  Receive Date: 20140905
  Receipt Date: 20141009
  Transmission Date: 20150528
  Serious: Yes (Hospitalization)
  Sender: FDA-Public Use
  Company Number: BR-SHIRE-BR201405447

PATIENT
  Age: 10 Year
  Sex: Male
  Weight: 28 kg

DRUGS (5)
  1. IDURSULFASE [Suspect]
     Active Substance: IDURSULFASE
     Indication: MUCOPOLYSACCHARIDOSIS II
     Dosage: 0.35 MG/KG, 1X/WEEK
     Route: 041
     Dates: start: 20090828
  2. IDURSULFASE [Suspect]
     Active Substance: IDURSULFASE
     Dosage: 0.7 MG/KG (ALTERNATING WITH 0.35 MG/KG DOSE WEEKLY), OTHER
     Route: 041
     Dates: start: 20090318
  3. OTHER CARDIAC PREPARATIONS [Concomitant]
     Active Substance: UNSPECIFIED INGREDIENT
     Indication: CARDIAC VALVE DISEASE
     Dosage: 3.125 MG, 2X/DAY:BID
     Route: 065
     Dates: start: 2012
  4. IDURSULFASE [Suspect]
     Active Substance: IDURSULFASE
     Dosage: 0.35 MG/KG (ALTERNATING WITH 0.7 MG/KG DOSE WEEKLY), OTHER
     Route: 041
     Dates: start: 20090318
  5. IDURSULFASE [Suspect]
     Active Substance: IDURSULFASE
     Dosage: UNK UNK, 1X/WEEK
     Route: 041
     Dates: start: 20090306

REACTIONS (3)
  - Adenoidal disorder [Recovered/Resolved]
  - Bronchospasm [Not Recovered/Not Resolved]
  - Dyspnoea [Not Recovered/Not Resolved]

NARRATIVE: CASE EVENT DATE: 20140811
